FAERS Safety Report 14228051 (Version 1)
Quarter: 2017Q4

REPORT INFORMATION
  Report Type: Report from Study
  Country: US (occurrence: US)
  Receive Date: 20171127
  Receipt Date: 20171127
  Transmission Date: 20180321
  Serious: Yes (Hospitalization)
  Sender: FDA-Public Use
  Company Number: US-ACTELION-A-US2017-162845

PATIENT
  Age: 7 Month
  Sex: Male

DRUGS (5)
  1. TRACLEER [Suspect]
     Active Substance: BOSENTAN
     Indication: PULMONARY ARTERIAL HYPERTENSION
     Dosage: 15.625 MG, QD (DISSOLVED IN WATER)
     Route: 048
     Dates: start: 20170916
  2. SILDENAFIL. [Concomitant]
     Active Substance: SILDENAFIL
  3. RANITIDINE. [Concomitant]
     Active Substance: RANITIDINE
  4. ASPIRIN. [Concomitant]
     Active Substance: ASPIRIN
  5. FUROSEMIDE. [Concomitant]
     Active Substance: FUROSEMIDE

REACTIONS (2)
  - Surgery [Recovered/Resolved]
  - Diarrhoea [Not Recovered/Not Resolved]
